FAERS Safety Report 8048540-0 (Version None)
Quarter: 2012Q1

REPORT INFORMATION
  Report Type: 
  Country: None (occurrence: None)
  Receive Date: 20120117
  Receipt Date: 20120113
  Transmission Date: 20120608
  Serious: No
  Sender: FDA-Public Use
  Company Number: US-PFIZER INC-2012010934

PATIENT
  Sex: Male
  Weight: 77.1 kg

DRUGS (3)
  1. ACTOS [Concomitant]
     Dosage: UNK
  2. LIPITOR [Suspect]
     Indication: BLOOD CHOLESTEROL INCREASED
     Dosage: UNK, ONCE A DAY
     Route: 048
  3. DIOVAN [Concomitant]
     Dosage: UNK

REACTIONS (3)
  - UPPER RESPIRATORY TRACT INFECTION [None]
  - COUGH [None]
  - NASOPHARYNGITIS [None]
